FAERS Safety Report 11423838 (Version 1)
Quarter: 2015Q3

REPORT INFORMATION
  Report Type: Spontaneous
  Country: US (occurrence: US)
  Receive Date: 20150827
  Receipt Date: 20150827
  Transmission Date: 20151125
  Serious: No
  Sender: FDA-Public Use
  Company Number: US-JNJFOC-20150608695

PATIENT
  Age: 15 Year
  Sex: Male
  Weight: 70.31 kg

DRUGS (2)
  1. MOTRIN IB [Suspect]
     Active Substance: IBUPROFEN
     Route: 048
  2. MOTRIN IB [Suspect]
     Active Substance: IBUPROFEN
     Indication: SKIN BURNING SENSATION
     Route: 048
     Dates: start: 20150525

REACTIONS (1)
  - Off label use [Unknown]
